FAERS Safety Report 9549205 (Version 2)
Quarter: 2013Q3

REPORT INFORMATION
  Report Type: Spontaneous
  Country: GB (occurrence: GB)
  Receive Date: 20130924
  Receipt Date: 20130924
  Transmission Date: 20140515
  Serious: Yes (Hospitalization, Disabling, Other)
  Sender: FDA-Public Use
  Company Number: GB-MERCK-1307GBR006840

PATIENT
  Age: 47 Year
  Sex: Female

DRUGS (4)
  1. SYCREST [Suspect]
     Indication: BIPOLAR DISORDER
     Dosage: 5 MG, UNK
     Route: 060
     Dates: start: 201207
  2. ESCITALOPRAM [Concomitant]
     Indication: DEPRESSION
     Dosage: 25 MG, QD
     Dates: start: 201204
  3. DIAZEPAM [Concomitant]
     Indication: ANXIETY
     Dosage: 10 MG, QID
  4. PROPRANOLOL HYDROCHLORIDE [Concomitant]
     Indication: ANXIETY
     Dosage: 40 MG, PRN

REACTIONS (1)
  - Lymphoedema [Not Recovered/Not Resolved]
